FAERS Safety Report 16625812 (Version 2)
Quarter: 2019Q3

REPORT INFORMATION
  Report Type: Report from Study
  Country: US (occurrence: US)
  Receive Date: 20190724
  Receipt Date: 20190813
  Transmission Date: 20191004
  Serious: Yes (Death, Hospitalization)
  Sender: FDA-Public Use
  Company Number: US-PFIZER INC-2019296351

PATIENT
  Age: 74 Year
  Sex: Female

DRUGS (2)
  1. FASLODEX [Concomitant]
     Active Substance: FULVESTRANT
     Dosage: UNK
  2. IBRANCE [Suspect]
     Active Substance: PALBOCICLIB
     Indication: BREAST CANCER
     Dosage: 125 MG, CYCLIC (21 DAYS ON/7 DAYS OFF)
     Route: 048
     Dates: start: 20190701, end: 20190711

REACTIONS (10)
  - Death [Fatal]
  - Dehydration [Unknown]
  - White blood cell count increased [Unknown]
  - Bronchitis [Unknown]
  - Herpes zoster [Unknown]
  - Feeling abnormal [Unknown]
  - Pneumonia [Unknown]
  - Nasal discharge discolouration [Recovered/Resolved]
  - Fatigue [Unknown]
  - Urinary tract infection [Unknown]

NARRATIVE: CASE EVENT DATE: 2019
